FAERS Safety Report 5602364-X (Version None)
Quarter: 2008Q1

REPORT INFORMATION
  Report Type: 
  Country: None (occurrence: None)
  Receive Date: 20080125
  Receipt Date: 20080114
  Transmission Date: 20080703
  Serious: Yes (Death)
  Sender: FDA-Public Use
  Company Number: GB-BRISTOL-MYERS SQUIBB COMPANY-13994769

PATIENT

DRUGS (3)
  1. HYDREA [Suspect]
     Indication: PLATELET COUNT INCREASED
  2. ASPIRIN [Concomitant]
  3. WARFARIN SODIUM [Concomitant]

REACTIONS (2)
  - BACK PAIN [None]
  - DEATH [None]
